FAERS Safety Report 8360818-X (Version None)
Quarter: 2012Q1

REPORT INFORMATION
  Report Type: 
  Country: None (occurrence: None)
  Receive Date: 20120323
  Receipt Date: 20110125
  Transmission Date: 20120608
  Serious: Yes (Hospitalization)
  Sender: FDA-Public Use
  Company Number: 163-21880-11012794

PATIENT
  Age: 73 Year
  Sex: Female

DRUGS (4)
  1. REVLIMID [Suspect]
     Indication: MULTIPLE MYELOMA
     Dosage: 5 MG, DAILY ON DIALYSIS DAYS, PO
     Route: 048
     Dates: start: 20101215
  2. HEPARIN [Concomitant]
  3. VELCADE [Concomitant]
  4. DEXAMETHASONE [Concomitant]

REACTIONS (1)
  - GOUT [None]
